FAERS Safety Report 14966586 (Version 4)
Quarter: 2019Q1

REPORT INFORMATION
  Report Type: Spontaneous
  Country: US (occurrence: US)
  Receive Date: 20180604
  Receipt Date: 20190228
  Transmission Date: 20190417
  Serious: Yes (Other)
  Sender: FDA-Public Use
  Company Number: US-BIOGEN-2018BI00589219

PATIENT
  Age: 49 Year
  Sex: Female

DRUGS (1)
  1. TYSABRI [Suspect]
     Active Substance: NATALIZUMAB
     Indication: MULTIPLE SCLEROSIS
     Route: 042
     Dates: start: 20171114

REACTIONS (8)
  - Gastrointestinal disorder [Unknown]
  - Cystitis [Recovered/Resolved with Sequelae]
  - Organ failure [Unknown]
  - Blood disorder [Unknown]
  - Muscle atrophy [Unknown]
  - Herpes zoster [Recovered/Resolved with Sequelae]
  - Lung infection [Unknown]
  - Dyspnoea [Unknown]

NARRATIVE: CASE EVENT DATE: 201809
